FAERS Safety Report 14288647 (Version 1)
Quarter: 2017Q4

REPORT INFORMATION
  Report Type: Spontaneous
  Country: US (occurrence: US)
  Receive Date: 20171214
  Receipt Date: 20171214
  Transmission Date: 20180321
  Serious: No
  Sender: FDA-Public Use
  Company Number: US-GLAXOSMITHKLINE-US2017188858

PATIENT
  Age: 94 Year
  Sex: Female

DRUGS (1)
  1. PREVACID 24 HR [Suspect]
     Active Substance: LANSOPRAZOLE
     Indication: PRODUCT USED FOR UNKNOWN INDICATION
     Dosage: UNK
     Dates: start: 19871206, end: 20171031

REACTIONS (2)
  - Incorrect drug administration duration [Recovered/Resolved]
  - Faeces discoloured [Unknown]

NARRATIVE: CASE EVENT DATE: 19871206
